FAERS Safety Report 22059102 (Version 1)
Quarter: 2023Q1

REPORT INFORMATION
  Report Type: Spontaneous
  Country: IT (occurrence: IT)
  Receive Date: 20230303
  Receipt Date: 20230303
  Transmission Date: 20230418
  Serious: Yes (Hospitalization)
  Sender: FDA-Public Use
  Company Number: None

PATIENT
  Age: 55 Year
  Sex: Male
  Weight: 88 kg

DRUGS (9)
  1. FLUDARABINE PHOSPHATE [Suspect]
     Active Substance: FLUDARABINE PHOSPHATE
     Indication: Acute lymphocytic leukaemia
     Dosage: 50MG/ 2ML
     Route: 065
     Dates: start: 20230207, end: 20230207
  2. CYTARABINE [Suspect]
     Active Substance: CYTARABINE
     Indication: Acute lymphocytic leukaemia
     Dosage: 20ML
     Route: 065
     Dates: start: 20230207, end: 20230207
  3. VFEND [Concomitant]
     Active Substance: VORICONAZOLE
     Indication: Antifungal prophylaxis
     Dosage: 800 MILLIGRAM DAILY; 400MG - TWICE/DAY
     Dates: start: 20230203
  4. NORVASC [Concomitant]
     Active Substance: AMLODIPINE BESYLATE
     Indication: Hypertension
     Dosage: 5 MILLIGRAM DAILY; 5MG/DAY
     Dates: start: 20230203
  5. COLISTIMETHATE SODIUM [Concomitant]
     Active Substance: COLISTIMETHATE SODIUM
     Indication: Antibiotic prophylaxis
     Dosage: 9,000,000 IU DIVIDED INTO 3 DOSES/DAY
     Dates: start: 20230203
  6. LASIX [Concomitant]
     Active Substance: FUROSEMIDE
     Indication: Hypertension
     Dosage: 20 MILLIGRAM DAILY; 20 MG/DAY
     Dates: start: 20230203
  7. ACYCLOVIR [Concomitant]
     Active Substance: ACYCLOVIR
     Indication: Antiviral prophylaxis
     Dosage: 800 MILLIGRAM DAILY; 400 MG - 2 TIMES/DAY
     Dates: start: 20230203
  8. BACTRIM [Concomitant]
     Active Substance: SULFAMETHOXAZOLE\TRIMETHOPRIM
     Indication: Antibiotic prophylaxis
     Dosage: 2 DOSAGE FORMS DAILY; 160 MG + 800 MG - 2 TABLETS / DAY
     Dates: start: 20230203
  9. VANCOMYCIN HYDROCHLORIDE [Concomitant]
     Active Substance: VANCOMYCIN HYDROCHLORIDE
     Indication: Infection
     Dosage: 1000 MILLIGRAM DAILY; 500 MG - 2 TIMES/DAY
     Dates: start: 20230203

REACTIONS (2)
  - Transaminases increased [Unknown]
  - Hepatic failure [Unknown]

NARRATIVE: CASE EVENT DATE: 20230208
